FAERS Safety Report 8964419 (Version 2)
Quarter: 2016Q2

REPORT INFORMATION
  Report Type: Spontaneous
  Country: CA (occurrence: CA)
  Receive Date: 20121213
  Receipt Date: 20160603
  Transmission Date: 20160815
  Serious: Yes (Death, Hospitalization, Other)
  Sender: FDA-Public Use
  Company Number: CA-ROCHE-1168471

PATIENT
  Age: 48 Year
  Sex: Female
  Weight: 79.4 kg

DRUGS (11)
  1. XOLAIR [Suspect]
     Active Substance: OMALIZUMAB
     Dosage: 375 MG, BIW
     Route: 058
     Dates: start: 20090703
  2. XOLAIR [Suspect]
     Active Substance: OMALIZUMAB
     Dosage: 375 MG, BIW
     Route: 058
     Dates: start: 20090911
  3. SYMBICORT [Concomitant]
     Active Substance: BUDESONIDE\FORMOTEROL FUMARATE DIHYDRATE
     Indication: PRODUCT USED FOR UNKNOWN INDICATION
     Route: 065
  4. XOLAIR [Suspect]
     Active Substance: OMALIZUMAB
     Dosage: UNK
     Route: 058
     Dates: start: 20160511
  5. XOLAIR [Suspect]
     Active Substance: OMALIZUMAB
     Indication: ASTHMA
     Dosage: 375 MG, BIW
     Route: 058
     Dates: start: 20090225, end: 20160511
  6. XOLAIR [Suspect]
     Active Substance: OMALIZUMAB
     Dosage: 375 MG, BIW
     Route: 058
     Dates: start: 20091204
  7. XOLAIR [Suspect]
     Active Substance: OMALIZUMAB
     Dosage: 375 MG, BIW
     Route: 058
     Dates: start: 20100115
  8. SINGULAIR [Concomitant]
     Active Substance: MONTELUKAST SODIUM
     Indication: PRODUCT USED FOR UNKNOWN INDICATION
     Route: 065
  9. NASONEX [Concomitant]
     Active Substance: MOMETASONE FUROATE
     Indication: PRODUCT USED FOR UNKNOWN INDICATION
     Route: 065
  10. XOLAIR [Suspect]
     Active Substance: OMALIZUMAB
     Dosage: 375 MG, BIW
     Route: 058
     Dates: start: 20120413
  11. XOLAIR [Suspect]
     Active Substance: OMALIZUMAB
     Dosage: 375 MG, BIW
     Route: 058
     Dates: start: 20091106

REACTIONS (26)
  - Bronchitis [Unknown]
  - Weight decreased [Unknown]
  - Nasal congestion [Unknown]
  - Malaise [Not Recovered/Not Resolved]
  - Upper-airway cough syndrome [Unknown]
  - Productive cough [Unknown]
  - Asthma [Unknown]
  - Discomfort [Unknown]
  - Pneumonia [Unknown]
  - Salivary hypersecretion [Unknown]
  - Sneezing [Unknown]
  - Fatigue [Unknown]
  - Death [Fatal]
  - Influenza [Recovered/Resolved]
  - Rhinorrhoea [Unknown]
  - Oxygen saturation decreased [Unknown]
  - Blood pressure decreased [Unknown]
  - Nasopharyngitis [Unknown]
  - Cough [Unknown]
  - Lung disorder [Unknown]
  - Oropharyngeal pain [Unknown]
  - Lung infection [Unknown]
  - Wheezing [Unknown]
  - Pyrexia [Unknown]
  - Sputum discoloured [Unknown]
  - Condition aggravated [Unknown]

NARRATIVE: CASE EVENT DATE: 20090226
